FAERS Safety Report 19108185 (Version 1)
Quarter: 2021Q2

REPORT INFORMATION
  Report Type: Spontaneous
  Country: DE (occurrence: DE)
  Receive Date: 20210408
  Receipt Date: 20210408
  Transmission Date: 20210717
  Serious: Yes (Hospitalization, Other)
  Sender: FDA-Public Use
  Company Number: NVSC2021DE074653

PATIENT
  Age: 8 Year
  Sex: Male

DRUGS (1)
  1. OXCARBAZEPINE. [Suspect]
     Active Substance: OXCARBAZEPINE
     Indication: EPILEPSY
     Dosage: 200 MG, QD (EVERY DAYS 2 SEPARATED DOSES)
     Route: 048
     Dates: start: 202005, end: 20200526

REACTIONS (4)
  - Status epilepticus [Recovered/Resolved]
  - Wrong dose [Recovered/Resolved]
  - Product monitoring error [Recovered/Resolved]
  - Incorrect dosage administered [Recovered/Resolved]
